FAERS Safety Report 6629125-7 (Version None)
Quarter: 2010Q1

REPORT INFORMATION
  Report Type: 
  Country: None (occurrence: None)
  Receive Date: 20100311
  Receipt Date: 20090814
  Transmission Date: 20100710
  Serious: No
  Sender: FDA-Public Use
  Company Number: US-BIOGENIDEC-2009BI026013

PATIENT
  Age: 52 Year
  Sex: Male

DRUGS (2)
  1. AVONEX [Suspect]
     Indication: MULTIPLE SCLEROSIS
     Route: 030
     Dates: start: 20090719
  2. COUMADIN [Concomitant]
     Indication: GENERAL SYMPTOM

REACTIONS (4)
  - FALL [None]
  - INFLUENZA LIKE ILLNESS [None]
  - INJECTION SITE ANAESTHESIA [None]
  - INJECTION SITE HAEMORRHAGE [None]
